FAERS Safety Report 20631845 (Version 5)
Quarter: 2024Q1

REPORT INFORMATION
  Report Type: Spontaneous
  Country: CA (occurrence: CA)
  Receive Date: 20220324
  Receipt Date: 20240122
  Transmission Date: 20240409
  Serious: Yes (Other)
  Sender: FDA-Public Use
  Company Number: CA-PFIZER INC-202200333877

PATIENT
  Age: 48 Year
  Sex: Male

DRUGS (3)
  1. GENOTROPIN [Suspect]
     Active Substance: SOMATROPIN
     Indication: Growth hormone deficiency
     Dosage: 600 UG, 6 X/WEEK
     Route: 058
     Dates: start: 20181003
  2. PANTOPRAZOLE SODIUM [Concomitant]
     Active Substance: PANTOPRAZOLE SODIUM
     Dosage: 40 MG, DAILY
     Route: 048
  3. TESTOSTERONE [Concomitant]
     Active Substance: TESTOSTERONE
     Dosage: UNK

REACTIONS (5)
  - Hip arthroplasty [Recovering/Resolving]
  - Poor quality device used [Unknown]
  - Incorrect dose administered by device [Unknown]
  - Device leakage [Unknown]
  - Muscular weakness [Recovering/Resolving]

NARRATIVE: CASE EVENT DATE: 20231001
